FAERS Safety Report 10413347 (Version 2)
Quarter: 2014Q3

REPORT INFORMATION
  Report Type: Spontaneous
  Country: US (occurrence: None)
  Receive Date: 20140825
  Receipt Date: 20140919
  Transmission Date: 20150326
  Serious: Yes (Life-Threatening, Hospitalization)
  Sender: FDA-Public Use
  Company Number: OTH-PAT-2014016

PATIENT
  Sex: Female

DRUGS (2)
  1. ENOXAPARINE (LOVENOX) [Concomitant]
  2. CYSTADANE [Suspect]
     Active Substance: BETAINE
     Indication: HOMOCYSTINURIA
     Dates: start: 1986

REACTIONS (5)
  - Deep vein thrombosis [None]
  - Haemorrhage [None]
  - Pulmonary haemorrhage [None]
  - Exposure during pregnancy [None]
  - Pleural effusion [None]

NARRATIVE: CASE EVENT DATE: 201406
